FAERS Safety Report 8394814-3 (Version None)
Quarter: 2012Q2

REPORT INFORMATION
  Report Type: 
  Country: None (occurrence: None)
  Receive Date: 20120524
  Receipt Date: 20120514
  Transmission Date: 20120825
  Serious: Yes (Other)
  Sender: FDA-Public Use
  Company Number: DSU-2012-03926

PATIENT
  Sex: Female

DRUGS (1)
  1. BENICAR [Suspect]
     Indication: PRODUCT USED FOR UNKNOWN INDICATION
     Dosage: ,PER ORAL
     Route: 048
     Dates: end: 20120101

REACTIONS (1)
  - GASTRITIS [None]
